FAERS Safety Report 6113921-9 (Version None)
Quarter: 2009Q1

REPORT INFORMATION
  Report Type: 
  Country: None (occurrence: None)
  Receive Date: 20090312
  Receipt Date: 20090226
  Transmission Date: 20090719
  Serious: Yes (Hospitalization)
  Sender: FDA-Public Use
  Company Number: FR-GENENTECH-278553

PATIENT
  Sex: Female

DRUGS (3)
  1. BEVACIZUMAB [Suspect]
     Indication: BREAST CANCER
     Dosage: 1400 MG, Q3W
     Route: 042
     Dates: start: 20090218
  2. HERCEPTIN [Suspect]
     Indication: BREAST CANCER
     Dosage: 739.34 MG, Q3W
     Route: 042
     Dates: start: 20090217
  3. TAXOTERE [Suspect]
     Indication: BREAST CANCER
     Dosage: 200 MG, Q3W
     Route: 042
     Dates: start: 20090218

REACTIONS (3)
  - LEUKOPENIA [None]
  - NEUTROPENIA [None]
  - PYREXIA [None]
